FAERS Safety Report 8527254 (Version 2)
Quarter: 2012Q4

REPORT INFORMATION
  Report Type: 
  Country: US (occurrence: US)
  Receive Date: 20120424
  Receipt Date: 20120903
  Transmission Date: 20130627
  Serious: Yes (Hospitalization, Other)
  Sender: FDA-Public Use
  Company Number: US-PFIZER INC-2012097489

PATIENT
  Age: 39 Year
  Sex: Female

DRUGS (2)
  1. CHANTIX [Suspect]
     Indication: SMOKING CESSATION THERAPY
     Dosage: 0.5 mg, UNK
     Dates: start: 20080530, end: 200808
  2. CHANTIX [Suspect]
     Dosage: 1 mg, UNK
     Dates: start: 20080530, end: 200808

REACTIONS (4)
  - Intentional overdose [Recovered/Resolved]
  - Suicide attempt [Unknown]
  - Depression [Not Recovered/Not Resolved]
  - Anxiety [Not Recovered/Not Resolved]
